FAERS Safety Report 18653733 (Version 2)
Quarter: 2021Q2

REPORT INFORMATION
  Report Type: Spontaneous
  Country: DE (occurrence: DE)
  Receive Date: 20201223
  Receipt Date: 20210416
  Transmission Date: 20210717
  Serious: Yes (Hospitalization)
  Sender: FDA-Public Use
  Company Number: DE-TEVA-2020-DE-1860795

PATIENT
  Age: 63 Year
  Sex: Male

DRUGS (16)
  1. VALSARTAN. [Suspect]
     Active Substance: VALSARTAN
     Dosage: 160 MILLIGRAM DAILY; 80 MG, 1?0?1?0, TABLETS
  2. METOPROLOL. [Interacting]
     Active Substance: METOPROLOL
     Dosage: 190 MILLIGRAM DAILY; 95 MG, 1?0?1?0, EXTENDED?RELEASE TABLETS
  3. MOXONIDIN [Interacting]
     Active Substance: MOXONIDINE
     Dosage: .9 MILLIGRAM DAILY; 0.3 MG, 1?1?1?0, TABLETS
  4. NITRENDIPIN [Interacting]
     Active Substance: NITRENDIPINE
     Dosage: 40 MILLIGRAM DAILY; 20 MG, 1?0?1?0, TABLETS
  5. FUROSEMID [Interacting]
     Active Substance: FUROSEMIDE
     Dosage: 40 MG, 1?0.5?0?0, TABLETS
  6. XIPAMID [Interacting]
     Active Substance: XIPAMIDE
     Dosage: 10 MILLIGRAM DAILY; 10 MG, 1?0?0?0, TABLETS
  7. ATORVASTATIN [Concomitant]
     Active Substance: ATORVASTATIN
     Dosage: 40 MILLIGRAM DAILY; 40 MG, 0?0?1?0, TABLETS
  8. INSULIN ASPART [Concomitant]
     Active Substance: INSULIN ASPART
     Dosage: ACCORDING TO BZ, SOLUTION FOR INJECTION / INFUSION
  9. DIHYDRALAZIN [Interacting]
     Active Substance: DIHYDRALAZINE SULFATE
     Dosage: 100 MILLIGRAM DAILY; 50 MG, 1?0?1?0, TABLETS
  10. URAPIDIL [Interacting]
     Active Substance: URAPIDIL
     Dosage: 60 MILLIGRAM DAILY; 30 MG, 1?0?1?0, EXTENDED?RELEASE TABLETS
  11. BICANORM [Concomitant]
     Active Substance: SODIUM BICARBONATE
     Dosage: .5 DOSAGE FORMS DAILY; 0.25?0?0.25?0, TABLETS
  12. EXFORGE [Interacting]
     Active Substance: AMLODIPINE BESYLATE\VALSARTAN
     Dosage: 5/160 MG, TABLETS, EXFORGE 5MG/160MG
  13. ADALAT 10MG [Concomitant]
     Dosage: 10 MG, CAPSULES
  14. ASS 100 [Concomitant]
     Active Substance: ASPIRIN
     Dosage: 100 MILLIGRAM DAILY; 100 MG, 0?1?0?0, TABLETS
  15. LEVOTHYROXIN?NATRIUM [Concomitant]
     Active Substance: LEVOTHYROXINE SODIUM
     Dosage: 50 MICROGRAM DAILY; 50 UG, 1?0?0?0, TABLETS
  16. ISOPHANE INSULIN [Concomitant]
     Active Substance: INSULIN NOS
     Dosage: ACCORDING TO BZ, SOLUTION FOR INJECTION / INFUSION

REACTIONS (5)
  - Tremor [Unknown]
  - Product prescribing error [Unknown]
  - Hypotension [Unknown]
  - Dizziness [Unknown]
  - Labelled drug-drug interaction medication error [Unknown]
